FAERS Safety Report 10089865 (Version 1)
Quarter: 2014Q2

REPORT INFORMATION
  Report Type: Spontaneous
  Country: US (occurrence: US)
  Receive Date: 20140421
  Receipt Date: 20140421
  Transmission Date: 20141212
  Serious: No
  Sender: FDA-Public Use
  Company Number: US-ABBVIE-13P-163-1154161-00

PATIENT
  Age: 10 Year
  Sex: Male
  Weight: 38.5 kg

DRUGS (1)
  1. LUPRON DEPOT-PED (3 MONTH) [Suspect]
     Indication: PRECOCIOUS PUBERTY
     Route: 050
     Dates: start: 201209, end: 20130912

REACTIONS (1)
  - Drug ineffective [Not Recovered/Not Resolved]
